FAERS Safety Report 5405090-5 (Version None)
Quarter: 2007Q3

REPORT INFORMATION
  Report Type: 
  Country: None (occurrence: None)
  Receive Date: 20070803
  Receipt Date: 20070723
  Transmission Date: 20080115
  Serious: Yes (Other)
  Sender: FDA-Public Use
  Company Number: SG-ROCHE-508351

PATIENT
  Age: 27 Year
  Sex: Female

DRUGS (5)
  1. ROCEPHIN [Suspect]
     Indication: PYELONEPHRITIS
     Route: 042
     Dates: start: 20070409, end: 20070409
  2. TRAMADOL HCL [Suspect]
     Indication: PAIN
     Route: 048
     Dates: start: 20070410, end: 20070411
  3. PANADOL [Concomitant]
     Route: 048
     Dates: start: 20070409
  4. LACTULOSE [Concomitant]
     Route: 048
     Dates: start: 20070409
  5. CIPROFLOXACIN [Concomitant]
     Dates: start: 20070409

REACTIONS (3)
  - DYSPNOEA [None]
  - EYE SWELLING [None]
  - RASH [None]
